FAERS Safety Report 7648019-1 (Version None)
Quarter: 2011Q3

REPORT INFORMATION
  Report Type: 
  Country: None (occurrence: None)
  Receive Date: 20110801
  Receipt Date: 20110727
  Transmission Date: 20111222
  Serious: Yes (Hospitalization)
  Sender: FDA-Public Use
  Company Number: CHPA2011US10013

PATIENT
  Age: 66 Year
  Sex: Female

DRUGS (2)
  1. SUNSCREEN AGENTS [Suspect]
     Dosage: UNK, UNK
     Route: 061
  2. VOLTAREN [Suspect]
     Indication: OSTEOARTHRITIS
     Dosage: 4 G, ONCE/SINGLE
     Route: 061
     Dates: start: 20110711, end: 20110711

REACTIONS (3)
  - TRANSIENT ISCHAEMIC ATTACK [None]
  - UNDERDOSE [None]
  - FEELING ABNORMAL [None]
